FAERS Safety Report 11972676 (Version 2)
Quarter: 2016Q1

REPORT INFORMATION
  Report Type: Other
  Country: US (occurrence: US)
  Receive Date: 20160128
  Receipt Date: 20160226
  Transmission Date: 20160526
  Serious: Yes (Hospitalization)
  Sender: FDA-Public Use
  Company Number: US-UNITED THERAPEUTICS-UNT-2015-016467

PATIENT
  Age: 77 Year
  Sex: Female
  Weight: 67.12 kg

DRUGS (2)
  1. TYVASO [Suspect]
     Active Substance: TREPROSTINIL
     Indication: PULMONARY HYPERTENSION
     Dosage: 18-72 ?G, QID
     Dates: start: 20110114
  2. ADCIRCA [Concomitant]
     Active Substance: TADALAFIL
     Indication: PRODUCT USED FOR UNKNOWN INDICATION

REACTIONS (13)
  - Pneumonia [Unknown]
  - Product use issue [Unknown]
  - Blood disorder [Unknown]
  - Anaemia [Unknown]
  - Dysuria [Unknown]
  - Lung disorder [Unknown]
  - Asthenia [Not Recovered/Not Resolved]
  - Headache [Unknown]
  - Hypertension [Unknown]
  - Oedema peripheral [Unknown]
  - Blood pressure abnormal [Unknown]
  - Saliva discolouration [Unknown]
  - Therapy cessation [Unknown]

NARRATIVE: CASE EVENT DATE: 201512
